FAERS Safety Report 17079255 (Version 1)
Quarter: 2019Q4

REPORT INFORMATION
  Report Type: Spontaneous
  Country: US (occurrence: US)
  Receive Date: 20191127
  Receipt Date: 20191127
  Transmission Date: 20200122
  Serious: Yes (Hospitalization, Other)
  Sender: FDA-Public Use
  Company Number: US-AJANTA PHARMA USA INC.-2077240

PATIENT
  Age: 73 Year
  Sex: Male
  Weight: 90.91 kg

DRUGS (17)
  1. RYTARY [Concomitant]
     Active Substance: CARBIDOPA\LEVODOPA
  2. FOLIC ACID. [Concomitant]
     Active Substance: FOLIC ACID
  3. LYRICA [Concomitant]
     Active Substance: PREGABALIN
  4. ASPIRIN. [Concomitant]
     Active Substance: ASPIRIN
  5. PROTONIX [Concomitant]
     Active Substance: PANTOPRAZOLE SODIUM
  6. SIMVASTATIN. [Concomitant]
     Active Substance: SIMVASTATIN
  7. MELATONIN [Concomitant]
     Active Substance: MELATONIN
  8. METOPROLOL. [Concomitant]
     Active Substance: METOPROLOL
     Dates: start: 2019, end: 2019
  9. COENZYME Q10 [Concomitant]
     Active Substance: UBIDECARENONE
  10. IRON [Concomitant]
     Active Substance: IRON
  11. VITAMIN B12 [Concomitant]
     Active Substance: CYANOCOBALAMIN
  12. CLONAZEPAM. [Concomitant]
     Active Substance: CLONAZEPAM
  13. VITAMIN D [Concomitant]
     Active Substance: VITAMIN D NOS
  14. N-ACETYL CYSTEINE [Concomitant]
     Active Substance: ACETYLCYSTEINE
  15. RANOLAZINE (ANDA 210054) [Suspect]
     Active Substance: RANOLAZINE
     Indication: CHEST PAIN
     Route: 048
     Dates: start: 20190821, end: 20190829
  16. GOCOVRI [Suspect]
     Active Substance: AMANTADINE
     Route: 048
  17. VITAMIN [Concomitant]
     Active Substance: VITAMINS

REACTIONS (4)
  - Sciatica [Recovered/Resolved]
  - Fall [Recovered/Resolved]
  - Skin laceration [Recovered/Resolved]
  - Syncope [Recovered/Resolved]

NARRATIVE: CASE EVENT DATE: 20190825
